FAERS Safety Report 7230389-X (Version None)
Quarter: 2011Q1

REPORT INFORMATION
  Report Type: 
  Country: None (occurrence: None)
  Receive Date: 20110118
  Receipt Date: 20110103
  Transmission Date: 20110831
  Serious: Yes (Other)
  Sender: FDA-Public Use
  Company Number: TR-TYCO HEALTHCARE/MALLINCKRODT-T201100004

PATIENT
  Age: 33 Year
  Sex: Female

DRUGS (2)
  1. FLUOXETINE [Suspect]
     Dosage: 40 MG, QD
  2. FLUOXETINE [Suspect]
     Indication: DEPRESSION
     Dosage: 20 MG, QD

REACTIONS (2)
  - MULTIPLE FRACTURES [None]
  - OSTEOPENIA [None]
